FAERS Safety Report 4278906-6 (Version None)
Quarter: 2004Q1

REPORT INFORMATION
  Report Type: 
  Country: None (occurrence: None)
  Receive Date: 20040122
  Receipt Date: 20040122
  Transmission Date: 20041129
  Serious: Yes (Life-Threatening)
  Sender: FDA-Public Use
  Company Number: None

PATIENT
  Age: 45 Year
  Sex: Male
  Weight: 90.7194 kg

DRUGS (1)
  1. WELLBUTRIN XL [Suspect]
     Indication: BIPOLAR II DISORDER
     Dosage: ONE QAM ORAL
     Route: 048
     Dates: start: 20031212, end: 20040119

REACTIONS (4)
  - ANXIETY [None]
  - DEPRESSION [None]
  - PHARMACEUTICAL PRODUCT COMPLAINT [None]
  - SUICIDAL IDEATION [None]
